FAERS Safety Report 24174546 (Version 1)
Quarter: 2024Q3

REPORT INFORMATION
  Report Type: Spontaneous
  Country: US (occurrence: US)
  Receive Date: 20240805
  Receipt Date: 20240805
  Transmission Date: 20241016
  Serious: Yes (Life-Threatening, Hospitalization)
  Sender: MYLAN
  Company Number: US-MYLANLABS-2024M1071762

PATIENT
  Age: 35 Year
  Sex: Male

DRUGS (6)
  1. PREDNISONE [Suspect]
     Active Substance: PREDNISONE
     Indication: Myelin oligodendrocyte glycoprotein antibody-associated disease
     Dosage: 60 MILLIGRAM, QD
     Route: 048
  2. PREDNISONE [Suspect]
     Active Substance: PREDNISONE
     Indication: Haemorrhage
     Dosage: UNK; A SLOW ORAL PREDNISONE TAPER THERAPY WAS COMPLETED.
     Route: 048
  3. PREDNISONE [Suspect]
     Active Substance: PREDNISONE
     Indication: Acute disseminated encephalomyelitis
  4. METHYLPREDNISOLONE [Suspect]
     Active Substance: METHYLPREDNISOLONE
     Indication: Myelin oligodendrocyte glycoprotein antibody-associated disease
     Dosage: 1000 MILLIGRAM, QD
     Route: 042
  5. METHYLPREDNISOLONE [Suspect]
     Active Substance: METHYLPREDNISOLONE
     Indication: Haemorrhage
     Dosage: UNK; RECEIVED ADDITIONAL IV METHYLPREDNISOLONE
     Route: 042
  6. METHYLPREDNISOLONE [Suspect]
     Active Substance: METHYLPREDNISOLONE
     Indication: Acute disseminated encephalomyelitis

REACTIONS (1)
  - Drug ineffective [Unknown]
